FAERS Safety Report 8988688 (Version 1)
Quarter: 2012Q4

REPORT INFORMATION
  Report Type: Spontaneous
  Country: US (occurrence: None)
  Receive Date: 20121218
  Receipt Date: 20121218
  Transmission Date: 20130627
  Serious: Yes (Other)
  Sender: FDA-Public Use
  Company Number: 2012/183

PATIENT
  Age: 68 Year
  Sex: Female

DRUGS (6)
  1. LEVOFLOXACIN [Suspect]
     Indication: PROPHYLAXIS
     Dates: start: 201007, end: 201007
  2. ATENOLOL [Concomitant]
  3. AMLODIPINE BESYLATE [Concomitant]
  4. DIPHENHYDRAMINE HYDROCHLORIDE [Concomitant]
  5. RABEPRAZOLE SODIUM [Concomitant]
  6. LOW-DOSE ASPIRIN [Concomitant]

REACTIONS (6)
  - Visual acuity reduced [None]
  - Vitreous floaters [None]
  - Macule [None]
  - Rash pustular [None]
  - Uveitis [None]
  - Chorioretinal disorder [None]
